FAERS Safety Report 7362490-4 (Version None)
Quarter: 2011Q1

REPORT INFORMATION
  Report Type: 
  Country: None (occurrence: None)
  Receive Date: 20110318
  Receipt Date: 20110310
  Transmission Date: 20110831
  Serious: Yes (Other)
  Sender: FDA-Public Use
  Company Number: AU-GENENTECH-315122

PATIENT
  Age: 50 Year
  Sex: Female

DRUGS (1)
  1. MABTHERA [Suspect]
     Indication: RENAL VASCULITIS
     Dosage: 375 MG/M2, 1/WEEK
     Route: 065

REACTIONS (1)
  - HEPATIC FUNCTION ABNORMAL [None]
